FAERS Safety Report 14197375 (Version 7)
Quarter: 2018Q2

REPORT INFORMATION
  Report Type: Report from Study
  Country: US (occurrence: US)
  Receive Date: 20171116
  Receipt Date: 20180628
  Transmission Date: 20180711
  Serious: Yes (Other)
  Sender: FDA-Public Use
  Company Number: US-JAZZ-2017-US-014152

PATIENT
  Age: 23 Year
  Sex: Female

DRUGS (2)
  1. XYREM [Suspect]
     Active Substance: SODIUM OXYBATE
     Indication: CATAPLEXY
  2. XYREM [Suspect]
     Active Substance: SODIUM OXYBATE
     Indication: NARCOLEPSY
     Dosage: 2.25 G, BID
     Route: 048
     Dates: start: 20171023

REACTIONS (21)
  - Abnormal behaviour [Recovered/Resolved]
  - Snoring [Unknown]
  - Drug intolerance [Unknown]
  - Headache [Unknown]
  - Depression [Not Recovered/Not Resolved]
  - Muscle spasms [Unknown]
  - Blood glucose abnormal [Not Recovered/Not Resolved]
  - Gastroenteritis viral [Not Recovered/Not Resolved]
  - Migraine [Unknown]
  - Fatigue [Not Recovered/Not Resolved]
  - Nausea [Unknown]
  - Suicidal ideation [Recovered/Resolved]
  - Motion sickness [Unknown]
  - Post-traumatic stress disorder [Not Recovered/Not Resolved]
  - Mood altered [Not Recovered/Not Resolved]
  - Feeling abnormal [Recovered/Resolved]
  - Enuresis [Unknown]
  - Anxiety [Not Recovered/Not Resolved]
  - Memory impairment [Not Recovered/Not Resolved]
  - Muscle twitching [Not Recovered/Not Resolved]
  - Restlessness [Recovered/Resolved]

NARRATIVE: CASE EVENT DATE: 2017
